FAERS Safety Report 7677939-7 (Version None)
Quarter: 2011Q3

REPORT INFORMATION
  Report Type: 
  Country: None (occurrence: None)
  Receive Date: 20110811
  Receipt Date: 20110802
  Transmission Date: 20111222
  Serious: Yes (Other)
  Sender: FDA-Public Use
  Company Number: US-ACTELION-A-US2011-52376

PATIENT

DRUGS (3)
  1. TRACLEER [Suspect]
     Indication: PULMONARY ARTERIAL HYPERTENSION
     Dosage: UNK
     Route: 048
     Dates: start: 20110713
  2. REVATIO [Concomitant]
  3. CALCIUM CHANNEL BLOCKERS [Concomitant]

REACTIONS (3)
  - DEPRESSION [None]
  - KIDNEY INFECTION [None]
  - HEART RATE IRREGULAR [None]
